FAERS Safety Report 17041689 (Version 1)
Quarter: 2019Q4

REPORT INFORMATION
  Report Type: Spontaneous
  Country: GB (occurrence: GB)
  Receive Date: 20191118
  Receipt Date: 20191118
  Transmission Date: 20200122
  Serious: Yes (Other)
  Sender: FDA-Public Use
  Company Number: GB-TEVA-2019-GB-1137330

PATIENT
  Age: 71 Year
  Sex: Female
  Weight: 61.68 kg

DRUGS (2)
  1. SALAMOL [Suspect]
     Active Substance: ALBUTEROL
     Indication: DYSPNOEA
     Dosage: 8 DOSAGE FORMS
     Route: 055
     Dates: start: 20171228, end: 20171230
  2. PULMICORT TURBUHALER [Concomitant]
     Active Substance: BUDESONIDE

REACTIONS (2)
  - Tremor [Recovered/Resolved]
  - Feeling jittery [Unknown]

NARRATIVE: CASE EVENT DATE: 20171228
